FAERS Safety Report 25325376 (Version 3)
Quarter: 2025Q3

REPORT INFORMATION
  Report Type: Spontaneous
  Country: CA (occurrence: CA)
  Receive Date: 20250516
  Receipt Date: 20250912
  Transmission Date: 20251021
  Serious: Yes (Hospitalization, Other)
  Sender: PFIZER
  Company Number: CA-PFIZER INC-PV202300157173

PATIENT
  Age: 80 Year
  Sex: Male
  Weight: 71.5 kg

DRUGS (39)
  1. RUXIENCE [Suspect]
     Active Substance: RITUXIMAB-PVVR
     Indication: Chronic lymphocytic leukaemia refractory
     Route: 042
     Dates: start: 20230824
  2. RUXIENCE [Suspect]
     Active Substance: RITUXIMAB-PVVR
     Indication: Haemolysis
     Route: 042
     Dates: start: 20230914
  3. RUXIENCE [Suspect]
     Active Substance: RITUXIMAB-PVVR
     Indication: Immune thrombocytopenia
     Route: 042
     Dates: start: 20231117, end: 20231229
  4. RUXIENCE [Suspect]
     Active Substance: RITUXIMAB-PVVR
     Dosage: 375 MG/M2, WEEKLY (EVERY WEEKLY 4XDOSES)
     Route: 042
  5. RUXIENCE [Suspect]
     Active Substance: RITUXIMAB-PVVR
     Dosage: 375 MG/M2 (690 MG), WEEKLY
     Route: 042
     Dates: start: 20240924
  6. RUXIENCE [Suspect]
     Active Substance: RITUXIMAB-PVVR
     Dosage: 375 MG/M2 (690 MG), WEEKLY
     Route: 042
     Dates: start: 20241004
  7. RUXIENCE [Suspect]
     Active Substance: RITUXIMAB-PVVR
     Dosage: 690 MG, INFUSED WEEKLY
     Route: 042
     Dates: start: 20241010
  8. RUXIENCE [Suspect]
     Active Substance: RITUXIMAB-PVVR
     Dosage: 690 MG, INFUSED WEEKLY
     Route: 042
     Dates: start: 20241017
  9. ACETAMINOPHEN [Concomitant]
     Active Substance: ACETAMINOPHEN
     Indication: Premedication
     Route: 048
     Dates: start: 20240924, end: 20240924
  10. ACETAMINOPHEN [Concomitant]
     Active Substance: ACETAMINOPHEN
     Route: 048
     Dates: start: 20241010, end: 20241010
  11. ALENDRONATE [Concomitant]
     Active Substance: ALENDRONATE SODIUM
  12. ALFUZOSIN [Concomitant]
     Active Substance: ALFUZOSIN
  13. ALLOPURINOL [Concomitant]
     Active Substance: ALLOPURINOL
  14. CEPHALEXIN [Concomitant]
     Active Substance: CEPHALEXIN
  15. DARIFENACIN [Concomitant]
     Active Substance: DARIFENACIN
  16. DORZOLAMIDE [Concomitant]
     Active Substance: DORZOLAMIDE
  17. DIPHENHYDRAMINE [Concomitant]
     Active Substance: DIPHENHYDRAMINE
     Indication: Premedication
     Route: 048
     Dates: start: 20240924, end: 20240924
  18. DIPHENHYDRAMINE [Concomitant]
     Active Substance: DIPHENHYDRAMINE
     Route: 048
     Dates: start: 20241004, end: 20241004
  19. DIPHENHYDRAMINE [Concomitant]
     Active Substance: DIPHENHYDRAMINE
     Route: 048
     Dates: start: 20241010, end: 20241010
  20. EDOXABAN [Concomitant]
     Active Substance: EDOXABAN
     Indication: Atrial fibrillation
     Dosage: 15 MG, 1X/DAY (TO BE HELD IF PIT{ 60)
     Route: 048
  21. FOLIC ACID [Concomitant]
     Active Substance: FOLIC ACID
  22. HUMAN IMMUNOGLOBULIN G [Concomitant]
     Active Substance: HUMAN IMMUNOGLOBULIN G
     Dosage: UNK UNK, MONTHLY
     Route: 042
     Dates: start: 202307
  23. HUMAN IMMUNOGLOBULIN G [Concomitant]
     Active Substance: HUMAN IMMUNOGLOBULIN G
     Dosage: UNK UNK, MONTHLY
     Route: 042
     Dates: start: 20250321
  24. IMMUNE GLOBULIN NOS [Concomitant]
     Active Substance: IMMUNE GLOBULIN NOS
     Dosage: UNK UNK, MONTHLY
     Route: 042
     Dates: start: 20250321
  25. EDOXABAN TOSYLATE [Concomitant]
     Active Substance: EDOXABAN TOSYLATE
  26. METHYLPREDNISOLONE [Concomitant]
     Active Substance: METHYLPREDNISOLONE
     Indication: Premedication
     Route: 042
     Dates: start: 20240924, end: 20240924
  27. METOPROLOL [Concomitant]
     Active Substance: METOPROLOL
  28. PANTOPRAZOLE [Concomitant]
     Active Substance: PANTOPRAZOLE
     Dosage: 40 MG, 1X/DAY
     Route: 048
  29. PREDNISONE [Concomitant]
     Active Substance: PREDNISONE
     Indication: Autoimmune haemolytic anaemia
     Dosage: 25 MG, DAILY
     Route: 048
  30. PREDNISONE [Concomitant]
     Active Substance: PREDNISONE
     Dosage: 50 MG, 1X/DAY
     Route: 048
  31. PREDNISONE [Concomitant]
     Active Substance: PREDNISONE
     Dosage: 25 MG, 1X/DAY
     Route: 048
     Dates: start: 20240827
  32. PREDNISONE [Concomitant]
     Active Substance: PREDNISONE
     Dosage: 20 MG, 1X/DAY
     Route: 048
     Dates: start: 20241105
  33. PREDNISONE [Concomitant]
     Active Substance: PREDNISONE
     Dosage: 15 MG, 1X/DAY
     Route: 048
     Dates: start: 20241115
  34. PREDNISONE [Concomitant]
     Active Substance: PREDNISONE
     Dosage: 10 MG, 1X/DAY
     Route: 048
     Dates: start: 20241203
  35. PREDNISONE [Concomitant]
     Active Substance: PREDNISONE
     Dosage: 15 MG, 1X/DAY (EVERY MONDAY WEDNESDAY FRIDAY)
     Route: 048
     Dates: start: 20241224
  36. PREDNISONE [Concomitant]
     Active Substance: PREDNISONE
     Dosage: 10 MG, 1X/DAY (REST OF THE DAYS)
     Route: 048
     Dates: start: 20241224
  37. RITUXAN [Concomitant]
     Active Substance: RITUXIMAB
     Dosage: UNK UNK, WEEKLY (COMPLETED 4 INFUSIONS)
     Dates: end: 20241024
  38. SEPTRA [Concomitant]
     Active Substance: SULFAMETHOXAZOLE\TRIMETHOPRIM
  39. VALACYCLOVIR [Concomitant]
     Active Substance: VALACYCLOVIR HYDROCHLORIDE
     Dosage: 500 MG, 2X/DAY
     Route: 048

REACTIONS (21)
  - Cholecystitis [Unknown]
  - Haemolytic anaemia [Unknown]
  - Decreased appetite [Unknown]
  - Oropharyngeal pain [Unknown]
  - Contusion [Recovering/Resolving]
  - Splenomegaly [Unknown]
  - Bladder diverticulum [Unknown]
  - Weight decreased [Unknown]
  - Epistaxis [Recovered/Resolved]
  - Dyspnoea exertional [Unknown]
  - Bladder trabeculation [Unknown]
  - Bladder diverticulum [Unknown]
  - Blood creatinine increased [Unknown]
  - Blood sodium decreased [Unknown]
  - Oropharyngeal pain [Unknown]
  - Blood uric acid increased [Unknown]
  - Blood pressure systolic increased [Unknown]
  - Blood pressure increased [Unknown]
  - Rash [Recovered/Resolved]
  - Diarrhoea [Recovering/Resolving]
  - Off label use [Unknown]

NARRATIVE: CASE EVENT DATE: 20240101
